FAERS Safety Report 9617939 (Version 1)
Quarter: 2013Q4

REPORT INFORMATION
  Report Type: Report from Study
  Country: US (occurrence: US)
  Receive Date: 20131011
  Receipt Date: 20131011
  Transmission Date: 20140711
  Serious: Yes (Death, Other)
  Sender: FDA-Public Use
  Company Number: US-BAXTER-2013BAX040139

PATIENT
  Sex: 0

DRUGS (1)
  1. DOPAMINE HYDROCHLORIDE AND 5% DEXTROSE INJECTION, USP [Suspect]
     Indication: HYPOTENSION
     Dosage: 5 MICROGRAMS/KG/MIN - TITRATED REGIMEN

REACTIONS (1)
  - Intraventricular haemorrhage [Fatal]
